FAERS Safety Report 11787875 (Version 2)
Quarter: 2015Q4

REPORT INFORMATION
  Report Type: Report from Study
  Country: US (occurrence: US)
  Receive Date: 20151130
  Receipt Date: 20151201
  Transmission Date: 20160305
  Serious: Yes (Hospitalization)
  Sender: FDA-Public Use
  Company Number: PHHY2015US149272

PATIENT
  Age: 12 Year
  Sex: Female

DRUGS (53)
  1. ZOFRAN [Concomitant]
     Active Substance: ONDANSETRON HYDROCHLORIDE
     Indication: PROCEDURAL NAUSEA
     Dosage: 4 MG, (1X/6 HOURS)
     Route: 048
     Dates: start: 20151008, end: 20151008
  2. DIPRIVAN [Concomitant]
     Active Substance: PROPOFOL
     Indication: ANAESTHESIA
     Dosage: 200 MG, QD
     Route: 042
     Dates: start: 20151008, end: 20151008
  3. VANCOCIN [Concomitant]
     Active Substance: VANCOMYCIN HYDROCHLORIDE
     Dosage: DOSAGE WAS TOPICAL POWDER,1APPLICATION, ONCE
     Route: 061
     Dates: start: 20151014, end: 20151014
  4. VALIUM [Concomitant]
     Active Substance: DIAZEPAM
     Dosage: 2 MG, PRN, (DOSAGE WAS 2 MG 1X/6 HOURS)
     Route: 048
     Dates: start: 20151016, end: 20151019
  5. ACETAMINOPHEN. [Concomitant]
     Active Substance: ACETAMINOPHEN
     Indication: PROCEDURAL PAIN
     Dosage: DOSAGE WAS 480 MG 1X/6 HOURS, 325
     Route: 048
     Dates: start: 20151011, end: 20151012
  6. DIAZEPAM. [Concomitant]
     Active Substance: DIAZEPAM
     Indication: PROCEDURAL PAIN
     Route: 048
     Dates: start: 20151019
  7. ELAVIL [Concomitant]
     Active Substance: AMITRIPTYLINE HYDROCHLORIDE
     Indication: PAIN
     Dosage: 25 MG, (EVENING)
     Route: 048
     Dates: start: 201506
  8. ALBUMIN HUMAN [Concomitant]
     Active Substance: ALBUMIN (HUMAN)
     Indication: PROPHYLAXIS
     Dosage: 250 ML, QD
     Route: 042
     Dates: start: 20151008, end: 20151008
  9. DIPRIVAN [Concomitant]
     Active Substance: PROPOFOL
     Dosage: 150 MG, QD
     Dates: start: 20151014, end: 20151014
  10. VANCOCIN [Concomitant]
     Active Substance: VANCOMYCIN HYDROCHLORIDE
     Indication: ANTIBIOTIC PROPHYLAXIS
     Dosage: DOSAGE WAS TOPICAL POWDER,1APPLICATION, ONCE
     Route: 061
     Dates: start: 20151008, end: 20151008
  11. SODIUM CHLORIDE. [Concomitant]
     Active Substance: SODIUM CHLORIDE
     Indication: CATHETER MANAGEMENT
     Dosage: 10 ML, PRN OSAGE WAS 10 ML, 0.9%
     Route: 042
     Dates: start: 20151008, end: 20151019
  12. GLYCOLAX [Concomitant]
     Active Substance: POLYETHYLENE GLYCOL 3350
     Indication: CONSTIPATION PROPHYLAXIS
     Dosage: 17 G, QD
     Route: 048
     Dates: start: 20151009
  13. DILAUDID [Concomitant]
     Active Substance: HYDROMORPHONE HYDROCHLORIDE
     Dosage: 0.2 MG/DL, PRN DOSAGE WAS 0.15 MG, PCA 0.2
     Route: 042
     Dates: start: 20151009, end: 20151010
  14. SCOPOLAMIN [Concomitant]
     Indication: PROCEDURAL NAUSEA
     Dosage: 1.5 MG, QD
     Route: 061
     Dates: start: 20151014, end: 20151014
  15. TRANEXAMIC ACID. [Concomitant]
     Active Substance: TRANEXAMIC ACID
     Indication: HAEMORRHAGE PROPHYLAXIS
     Dosage: 4208 MG, QD
     Route: 042
     Dates: start: 20151008, end: 20151008
  16. VERSED [Concomitant]
     Active Substance: MIDAZOLAM HYDROCHLORIDE
     Indication: ANAESTHESIA
     Dosage: 10 MG, QD
     Route: 048
     Dates: start: 20151008, end: 20151008
  17. VERSED [Concomitant]
     Active Substance: MIDAZOLAM HYDROCHLORIDE
     Dosage: UNK
     Route: 048
     Dates: start: 20151014, end: 20151014
  18. BETADINE [Concomitant]
     Active Substance: POVIDONE-IODINE
     Indication: PROPHYLAXIS
     Dosage: DOSAGE WAS 1 APPLICATION
     Route: 061
     Dates: start: 20151008, end: 20151008
  19. RECOMBINANT HUMAN THROMBOPOIETIN [Concomitant]
     Active Substance: THROMBOPOIETIN
     Indication: PROPHYLAXIS
     Dosage: 20000 U, QD
     Dates: start: 20151008, end: 20151008
  20. VALIUM [Concomitant]
     Active Substance: DIAZEPAM
     Dosage: 5 MG,(DOSAGE WAS 5 MG 1X/6 HOURS)
     Route: 048
     Dates: start: 20151011, end: 20151015
  21. BETADINE [Concomitant]
     Active Substance: POVIDONE-IODINE
     Dosage: DOSAGE WAS 1 APPLICATION
     Route: 061
     Dates: start: 20151014, end: 20151014
  22. RECOMBINANT HUMAN THROMBOPOIETIN [Concomitant]
     Active Substance: THROMBOPOIETIN
     Dosage: 50000 U, QD
     Route: 042
     Dates: start: 20151014, end: 20151014
  23. VALIUM [Concomitant]
     Active Substance: DIAZEPAM
     Indication: PROCEDURAL PAIN
     Dosage: 2 MG, DOSAGE WAS 2 MG 1X/6 HOURS
     Route: 042
     Dates: start: 20151009, end: 20151011
  24. NARCAN [Concomitant]
     Active Substance: NALOXONE HYDROCHLORIDE
     Indication: PRURITUS
     Dosage: DOSAGE WAS 50 MCG/ML IN DEXTROSE
     Route: 042
     Dates: start: 20151009, end: 20151011
  25. DULCOLAX NOS [Concomitant]
     Active Substance: BISACODYL OR DOCUSATE SODIUM
     Indication: CONSTIPATION PROPHYLAXIS
     Dosage: 10 MG, QD
     Route: 054
     Dates: start: 20151010, end: 20151016
  26. ACETAMINOPHEN. [Concomitant]
     Active Substance: ACETAMINOPHEN
     Dosage: DOSAGE WAS 500 MG Q4H, PRN
     Route: 048
     Dates: start: 20151015, end: 20151019
  27. OXYCODONE [Concomitant]
     Active Substance: OXYCODONE
     Indication: PROCEDURAL PAIN
     Dosage: 4.9 MG, Q12H, PRN
     Route: 048
     Dates: start: 20151019
  28. NEURONTIN [Concomitant]
     Active Substance: GABAPENTIN
     Indication: PROCEDURAL PAIN
     Dosage: 700 MG, QD
     Dates: start: 20151008, end: 20151008
  29. NEURONTIN [Concomitant]
     Active Substance: GABAPENTIN
     Dosage: 200 MG, TID
     Route: 048
     Dates: start: 20151009, end: 20151019
  30. ASTRAMORPH PF//MORPHINE SULFATE [Concomitant]
     Indication: PROCEDURAL PAIN
     Dosage: 2 MG, QD
     Route: 042
     Dates: start: 20151008, end: 20151008
  31. PHENYLEPHRINE [Concomitant]
     Active Substance: PHENYLEPHRINE\PHENYLEPHRINE HYDROCHLORIDE
     Indication: ANAESTHESIA
     Dosage: 150 UG, QD
     Route: 042
     Dates: start: 20151008, end: 20151008
  32. ZEMURON [Concomitant]
     Active Substance: ROCURONIUM BROMIDE
     Indication: ANAESTHESIA
     Dosage: 30 MG, QD
     Dates: start: 20151008, end: 20151008
  33. ROXICODONE [Concomitant]
     Active Substance: OXYCODONE HYDROCHLORIDE
     Dosage: DOSAGE WAS 5 MG Q4H, 1 MG/ML PRN
     Route: 048
     Dates: start: 20151015, end: 20151019
  34. GABAPENTIN. [Concomitant]
     Active Substance: GABAPENTIN
     Indication: BACK PAIN
     Dosage: 100 MG, TID
     Route: 048
     Dates: start: 20151019
  35. NEURONTIN [Concomitant]
     Active Substance: GABAPENTIN
     Indication: BACK PAIN
     Dosage: 100 MG, TID
     Route: 048
     Dates: start: 201506, end: 20151009
  36. SUFENTA [Concomitant]
     Active Substance: SUFENTANIL CITRATE
     Indication: ANAESTHESIA
     Dosage: 30 UG, QD
     Route: 042
     Dates: start: 20151008, end: 20151008
  37. VALIUM [Concomitant]
     Active Substance: DIAZEPAM
     Dosage: 5 MG, QD (DOSAGE WAS 5 MG 1X/6 HOURS )
     Route: 042
     Dates: start: 20151014, end: 20151014
  38. DICLOFENAC POTASSIUM. [Suspect]
     Active Substance: DICLOFENAC POTASSIUM
     Indication: PROCEDURAL PAIN
     Dosage: 25 MG, (1X6 HOURS, THREE TOTAL DOSES)
     Route: 048
     Dates: start: 20151012
  39. TORADOL [Suspect]
     Active Substance: KETOROLAC TROMETHAMINE
     Indication: PROCEDURAL PAIN
     Route: 042
  40. PLASMALYTE [Concomitant]
     Active Substance: ELECTROLYTES NOS
     Indication: PROPHYLAXIS AGAINST DEHYDRATION
     Dosage: 2400 ML, QD
     Route: 042
     Dates: start: 20151008, end: 20151008
  41. PLASMALYTE [Concomitant]
     Active Substance: ELECTROLYTES NOS
     Route: 042
     Dates: start: 20151014, end: 20151014
  42. ASTRAMORPH PF//MORPHINE SULFATE [Concomitant]
     Dosage: 8 MG, PRN
     Route: 042
     Dates: start: 20151014, end: 20151014
  43. DIPRIVAN [Concomitant]
     Active Substance: PROPOFOL
     Dosage: 89.43 MG, QD
     Dates: start: 20151014, end: 20151014
  44. NEBCIN [Concomitant]
     Active Substance: TOBRAMYCIN SULFATE
     Indication: ANTIBIOTIC PROPHYLAXIS
     Dosage: DURATION WAS 1 DAY, DOSAGE WAS TOPICAL POWDER
     Route: 061
     Dates: start: 20151008, end: 20151008
  45. DILAUDID [Concomitant]
     Active Substance: HYDROMORPHONE HYDROCHLORIDE
     Indication: PROCEDURAL PAIN
     Dosage: DOSAGE WAS PCA 0.2MG/ML, 0.15MG/HR
     Route: 048
     Dates: start: 20151009, end: 20151009
  46. ACETAMINOPHEN. [Concomitant]
     Active Substance: ACETAMINOPHEN
     Dosage: DOSAGE WAS 480 MG 1X/6 HOURS, PRN
     Route: 048
     Dates: start: 20151019
  47. ROXICODONE [Concomitant]
     Active Substance: OXYCODONE HYDROCHLORIDE
     Indication: PROCEDURAL PAIN
     Dosage: DOSAGE WAS 5 MG Q4H, 1 MG/ML PRN
     Route: 048
     Dates: start: 20151010, end: 20151012
  48. SUBLIMAZE [Concomitant]
     Active Substance: FENTANYL CITRATE
     Indication: PROCEDURAL PAIN
     Dosage: 150 UG, QD
     Route: 042
     Dates: start: 20151014, end: 20151014
  49. MORPHINE [Concomitant]
     Active Substance: MORPHINE
     Indication: PROCEDURAL PAIN
     Dosage: 1 MG/ML (DOSAGE WAS 0.9 MG) PCA (21DELIVERIES)
     Route: 042
     Dates: start: 20151008, end: 20151009
  50. MORPHINE [Concomitant]
     Active Substance: MORPHINE
     Dosage: 1 MG/ML DOSAGE WAS 0.9 MG
     Route: 042
     Dates: start: 20151014, end: 20151015
  51. DOLOPHINE [Concomitant]
     Active Substance: METHADONE HYDROCHLORIDE
     Indication: PROCEDURAL PAIN
     Dosage: 7 MG, QD
     Route: 042
     Dates: start: 20151008, end: 20151008
  52. HYCET [Concomitant]
     Active Substance: ACETAMINOPHEN\HYDROCODONE BITARTRATE
     Indication: PROCEDURAL PAIN
     Dosage: DOSAGE WAS 10 ML Q4H, 108 MG/5 ML
     Route: 048
     Dates: start: 20151013, end: 20151014
  53. AMOXICILLIN. [Concomitant]
     Active Substance: AMOXICILLIN
     Indication: PROPHYLAXIS
     Dosage: 2000 MG, QD
     Dates: start: 20151019

REACTIONS (1)
  - Wound secretion [Recovered/Resolved]

NARRATIVE: CASE EVENT DATE: 20151014
